FAERS Safety Report 5027129-1 (Version None)
Quarter: 2006Q2

REPORT INFORMATION
  Report Type: 
  Country: None (occurrence: None)
  Receive Date: 20060612
  Receipt Date: 20060531
  Transmission Date: 20061013
  Serious: Yes (Death, Other)
  Sender: FDA-Public Use
  Company Number: USA-2006-0023833

PATIENT
  Age: 49 Year
  Sex: Male

DRUGS (3)
  1. OXYCODONE HCL [Suspect]
     Dosage: 80 MGQ12H INTRAVENOUS
     Route: 042
     Dates: start: 20030301, end: 20050801
  2. PERCODAN (HOMATROPINE TERPETHALATE, PHENACETIN, OXYCODONE TEREPTHALATE [Concomitant]
  3. VIAGRA [Concomitant]

REACTIONS (4)
  - ACCIDENTAL OVERDOSE [None]
  - CARDIAC ARREST [None]
  - CORONARY ARTERY DISEASE [None]
  - INCORRECT ROUTE OF DRUG ADMINISTRATION [None]
